FAERS Safety Report 9839942 (Version 2)
Quarter: 2014Q1

REPORT INFORMATION
  Report Type: Spontaneous
  Country: US (occurrence: US)
  Receive Date: 20140124
  Receipt Date: 20140319
  Transmission Date: 20141002
  Serious: Yes (Other)
  Sender: FDA-Public Use
  Company Number: US-JNJFOC-20140105644

PATIENT
  Sex: Female

DRUGS (3)
  1. BENADRYL [Suspect]
     Indication: PRODUCT USED FOR UNKNOWN INDICATION
     Route: 065
  2. INVOKANA [Concomitant]
     Indication: PRODUCT USED FOR UNKNOWN INDICATION
     Route: 065
     Dates: start: 2013
  3. INVOKANA [Concomitant]
     Indication: PRODUCT USED FOR UNKNOWN INDICATION
     Dosage: 7-8 WEEKS AGO
     Route: 065
     Dates: start: 2013

REACTIONS (8)
  - Vision blurred [Unknown]
  - Eye haemorrhage [Unknown]
  - Anxiety [Unknown]
  - Anger [Unknown]
  - Nervous system disorder [Unknown]
  - Drug hypersensitivity [Unknown]
  - Agitation [Unknown]
  - Product packaging issue [Unknown]
